FAERS Safety Report 6652969-2 (Version None)
Quarter: 2010Q1

REPORT INFORMATION
  Report Type: 
  Country: None (occurrence: None)
  Receive Date: 20100326
  Receipt Date: 20100315
  Transmission Date: 20100710
  Serious: Yes (Other)
  Sender: FDA-Public Use
  Company Number: PHHY2010FR16504

PATIENT
  Sex: Male

DRUGS (1)
  1. EXJADE [Suspect]
     Indication: CONGENITAL APLASTIC ANAEMIA
     Dosage: 1000 MG DAILY
     Route: 048
     Dates: start: 20030813

REACTIONS (8)
  - BLOOD URINE PRESENT [None]
  - CALCULUS URETHRAL [None]
  - MICTURITION URGENCY [None]
  - PAIN [None]
  - RENAL SURGERY [None]
  - URINARY RETENTION [None]
  - URINARY TRACT DISORDER [None]
  - URINE FLOW DECREASED [None]
